FAERS Safety Report 8958570 (Version 1)
Quarter: 2012Q4

REPORT INFORMATION
  Report Type: Spontaneous
  Country: US (occurrence: None)
  Receive Date: 20121207
  Receipt Date: 20121207
  Transmission Date: 20130627
  Serious: Yes (Other)
  Sender: FDA-Public Use
  Company Number: None

PATIENT
  Sex: Female
  Weight: 58.97 kg

DRUGS (2)
  1. NORCO [Suspect]
     Indication: PAIN
     Dosage: 5/325/7.5 4xdaily
  2. VICODIN [Suspect]
     Indication: SPASTICITY
     Dosage: 5/500 4xdaily

REACTIONS (7)
  - Nausea [None]
  - Vomiting [None]
  - Hot flush [None]
  - Disturbance in attention [None]
  - Restlessness [None]
  - Drug effect decreased [None]
  - Product substitution issue [None]
